FAERS Safety Report 6647902-3 (Version None)
Quarter: 2010Q1

REPORT INFORMATION
  Report Type: 
  Country: None (occurrence: None)
  Receive Date: 20100318
  Receipt Date: 20100311
  Transmission Date: 20100710
  Serious: No
  Sender: FDA-Public Use
  Company Number: 20096884

PATIENT
  Age: 34 Year
  Sex: Female
  Weight: 50.3 kg

DRUGS (4)
  1. GABALON       INTRATHECAL(BACLOFEN INJECTION) [Suspect]
     Indication: MUSCLE SPASTICITY
     Dosage: 250-510 MCG, DAILY, INTRATHECAL SE
     Route: 037
     Dates: start: 20080826
  2. DIAZEPAM [Concomitant]
  3. CLONAZEPAM [Concomitant]
  4. GABAPEN [Concomitant]

REACTIONS (4)
  - CATHETER SITE PAIN [None]
  - EXCESSIVE GRANULATION TISSUE [None]
  - MEDICAL DEVICE COMPLICATION [None]
  - WOUND COMPLICATION [None]
